FAERS Safety Report 5929400-5 (Version None)
Quarter: 2008Q4

REPORT INFORMATION
  Report Type: 
  Country: None (occurrence: None)
  Receive Date: 20081021
  Receipt Date: 20081014
  Transmission Date: 20090506
  Serious: Yes (Life-Threatening)
  Sender: FDA-Public Use
  Company Number: AZAAT200800379

PATIENT
  Age: 71 Year
  Sex: Male
  Weight: 82 kg

DRUGS (10)
  1. VIDAZA [Suspect]
     Indication: CHRONIC MYELOMONOCYTIC LEUKAEMIA
     Dosage: SUBCUTANEOUS
     Route: 058
     Dates: start: 20080911, end: 20080918
  2. LASIX [Concomitant]
  3. OMEC (OMEPRAZOLE) [Concomitant]
  4. NAVOBAN (TROPISETRON HYDROCHLORIDE) [Concomitant]
  5. L-VALIN (VALINE) [Concomitant]
  6. LOVENOX [Concomitant]
  7. TRAMADOL HCL [Concomitant]
  8. COSOPT EYE DROPS (COSOPT) [Concomitant]
  9. XALATAN EYE DROPS (LATANOPROST) [Concomitant]
  10. UROSINI (ALLOPURINOL) [Concomitant]

REACTIONS (2)
  - CYSTITIS HAEMORRHAGIC [None]
  - EMBOLISM [None]
